FAERS Safety Report 6173614-9 (Version None)
Quarter: 2009Q2

REPORT INFORMATION
  Report Type: 
  Country: None (occurrence: None)
  Receive Date: 20090429
  Receipt Date: 20090429
  Transmission Date: 20091009
  Serious: Yes (Disabling)
  Sender: FDA-Public Use
  Company Number: None

PATIENT
  Age: 31 Year
  Sex: Female
  Weight: 63.5036 kg

DRUGS (1)
  1. REGLAN [Suspect]
     Indication: SUPPRESSED LACTATION
     Dosage: 2 DOSES PO
     Route: 048
     Dates: start: 20081016, end: 20081016

REACTIONS (2)
  - AKATHISIA [None]
  - TORTICOLLIS [None]
